FAERS Safety Report 7236607-6 (Version None)
Quarter: 2011Q1

REPORT INFORMATION
  Report Type: 
  Country: None (occurrence: None)
  Receive Date: 20110113
  Receipt Date: 20110103
  Transmission Date: 20110831
  Serious: Yes (Hospitalization)
  Sender: FDA-Public Use
  Company Number: 1000018070

PATIENT
  Age: 86 Year
  Sex: Female

DRUGS (4)
  1. ESCITALOPRAM OXALATE [Suspect]
     Dosage: 5 MG (5 MG, 1 IN 1 D), ORAL
     Route: 048
     Dates: start: 20101019, end: 20101027
  2. OMEPRAZOLE [Suspect]
     Dosage: ORAL
     Route: 048
     Dates: start: 20101013, end: 20101028
  3. COVERSYL (PERINDOPRIL ERBUMINE) (PERINDOPRIL ERBUMINE) [Concomitant]
  4. IMOVANE (ZOPICLONE) (ZOPICLONE) [Concomitant]

REACTIONS (4)
  - HYPOMAGNESAEMIA [None]
  - DRUG INTERACTION [None]
  - COMA [None]
  - HYPONATRAEMIA [None]
